FAERS Safety Report 4588024-5 (Version None)
Quarter: 2005Q1

REPORT INFORMATION
  Report Type: 
  Country: None (occurrence: None)
  Receive Date: 20050217
  Receipt Date: 20050114
  Transmission Date: 20050727
  Serious: Yes (Other)
  Sender: FDA-Public Use
  Company Number: CIO05000886

PATIENT
  Age: 18 Year
  Sex: Female
  Weight: 47.6 kg

DRUGS (1)
  1. VICKS INHALER (BORNYL ACETATE .21 MG, CAMPHOR 57.97 MG. LEVETAMFETAMIN [Suspect]
     Dates: start: 20050110, end: 20050110

REACTIONS (6)
  - BLINDNESS [None]
  - CORNEAL ABRASION [None]
  - EYE PAIN [None]
  - INJURY CORNEAL [None]
  - MEDICAL DEVICE COMPLICATION [None]
  - VISION BLURRED [None]
